FAERS Safety Report 7957762-6 (Version None)
Quarter: 2011Q4

REPORT INFORMATION
  Report Type: 
  Country: None (occurrence: None)
  Receive Date: 20111130
  Receipt Date: 20111116
  Transmission Date: 20120403
  Serious: Yes (Other)
  Sender: FDA-Public Use
  Company Number: JP-2011-12005

PATIENT
  Age: 63 Year
  Sex: Female

DRUGS (14)
  1. LIVALO [Concomitant]
  2. SAMSCA [Suspect]
     Indication: FLUID RETENTION
     Dosage: 15 MG MILLIGRAM(S), QAM, ORA
     Route: 048
     Dates: start: 20111105, end: 20111105
  3. ALLOPURINOL [Concomitant]
  4. DOBUTREX (DOBUTAMINE HYDROCHLORIDE) INJECTION [Concomitant]
     Indication: CARDIAC FAILURE
     Dosage: 360 MG MILLIGRAM(S), DAILY DOSE, IV DRIP
     Route: 041
     Dates: start: 20111105, end: 20111109
  5. LASIX [Concomitant]
  6. WARFARIN SODIUM [Concomitant]
  7. PIMOBENDAN (PIMOBENDAN) TABLET [Concomitant]
  8. CARVEDILOL [Concomitant]
  9. NITOROL (ISOSORBIDE DINITRATE) INJECTION [Concomitant]
  10. COVERSYL (PERINDOPRIL ERBUMINE) TABLET [Concomitant]
  11. HEPARIN SODIUM [Concomitant]
  12. PRIMPERAN (METOCLOPRAMIDE HYDROCHLORIDE) INJECTION [Concomitant]
  13. DOPAMINE HYDROCHLORIDE [Suspect]
     Indication: CARDIAC FAILURE
     Dosage: 360 MG MILLIGRAM(S), DAILY DOSE, INTRAVENOUS
     Route: 042
     Dates: start: 20111109, end: 20111109
  14. AMIODARONE HYDROCHLORIDE  (AMIODARONE HYDROCHLORIDE) TABLET [Concomitant]

REACTIONS (2)
  - THIRST [None]
  - HYPERNATRAEMIA [None]
